FAERS Safety Report 8264498-3 (Version None)
Quarter: 2012Q2

REPORT INFORMATION
  Report Type: 
  Country: None (occurrence: None)
  Receive Date: 20120403
  Receipt Date: 20120319
  Transmission Date: 20120825
  Serious: Yes (Disabling, Other)
  Sender: FDA-Public Use
  Company Number: 2012P1010314

PATIENT
  Age: 68 Year
  Sex: Female

DRUGS (1)
  1. PREDNISOLONE [Suspect]
     Indication: TEMPORAL ARTERITIS
     Dosage: 100 MG;QD;PO
     Route: 048

REACTIONS (7)
  - OSTEOPENIA [None]
  - DIABETES MELLITUS [None]
  - VAGINAL ULCERATION [None]
  - PAIN [None]
  - IMMOBILE [None]
  - VAGINAL DISORDER [None]
  - VAGINAL PROLAPSE [None]
